FAERS Safety Report 10223077 (Version 1)
Quarter: 2014Q2

REPORT INFORMATION
  Report Type: Spontaneous
  Country: US (occurrence: None)
  Receive Date: 20140606
  Receipt Date: 20140606
  Transmission Date: 20141212
  Serious: Yes (Other)
  Sender: FDA-Public Use
  Company Number: None

PATIENT
  Age: 32 Year
  Sex: Male

DRUGS (1)
  1. INTRON A [Suspect]
     Indication: NEOPLASM
     Dosage: 0.42ML, 3X A WK., SUB - Q INJ.
     Route: 058
     Dates: start: 20140417

REACTIONS (3)
  - Loss of consciousness [None]
  - Dizziness [None]
  - Therapy cessation [None]
